FAERS Safety Report 18897413 (Version 2)
Quarter: 2021Q1

REPORT INFORMATION
  Report Type: Spontaneous
  Country: GB (occurrence: GB)
  Receive Date: 20210215
  Receipt Date: 20210216
  Transmission Date: 20210420
  Serious: Yes (Other)
  Sender: FDA-Public Use
  Company Number: GB-BEH-2021128129

PATIENT
  Age: 36 Year
  Sex: Male

DRUGS (3)
  1. PRIVIGEN [Suspect]
     Active Substance: HUMAN IMMUNOGLOBULIN G
     Dosage: UNK
     Route: 042
  2. PRIVIGEN [Suspect]
     Active Substance: HUMAN IMMUNOGLOBULIN G
     Dosage: UNK
     Route: 042
  3. PRIVIGEN [Suspect]
     Active Substance: HUMAN IMMUNOGLOBULIN G
     Indication: MULTIFOCAL MOTOR NEUROPATHY
     Dosage: 80 GRAM, QMT (EVERY 4 WEEKS)
     Route: 042
     Dates: start: 20210204

REACTIONS (2)
  - SARS-CoV-2 antibody test positive [Unknown]
  - SARS-CoV-2 test false positive [Unknown]

NARRATIVE: CASE EVENT DATE: 20210204
